FAERS Safety Report 22150358 (Version 3)
Quarter: 2023Q2

REPORT INFORMATION
  Report Type: Spontaneous
  Country: US (occurrence: US)
  Receive Date: 20230329
  Receipt Date: 20230524
  Transmission Date: 20230721
  Serious: Yes (Other)
  Sender: FDA-Public Use
  Company Number: US-002147023-NVSC2023US066225

PATIENT
  Age: 76 Year
  Sex: Male

DRUGS (1)
  1. PREDNISOLONE ACETATE [Suspect]
     Active Substance: PREDNISOLONE ACETATE
     Indication: Product used for unknown indication
     Dosage: 1 DRP, QD (1ST EYE) (15 ML LDP) (OTHER EYE 1 DROP 2 TIMES/DAY, AFTER TODAY 1/DAY 2ND EYE ONLY FOR TH
     Dates: start: 20230228

REACTIONS (8)
  - Blindness [Unknown]
  - Lens dislocation [Recovered/Resolved with Sequelae]
  - Incorrect dose administered [Unknown]
  - Product prescribing issue [Unknown]
  - Product use issue [Unknown]
  - Product use complaint [Unknown]
  - Liquid product physical issue [Unknown]
  - Product quality issue [Unknown]

NARRATIVE: CASE EVENT DATE: 20230301
